FAERS Safety Report 24703498 (Version 1)
Quarter: 2024Q4

REPORT INFORMATION
  Report Type: Spontaneous
  Country: GB (occurrence: GB)
  Receive Date: 20241205
  Receipt Date: 20241205
  Transmission Date: 20250115
  Serious: Yes (Other)
  Sender: ABBVIE
  Company Number: None

PATIENT
  Age: 19 Year
  Sex: Female

DRUGS (2)
  1. CITALOPRAM HYDROBROMIDE [Suspect]
     Active Substance: CITALOPRAM HYDROBROMIDE
     Indication: Anxiety
     Route: 065
  2. CITALOPRAM HYDROBROMIDE [Suspect]
     Active Substance: CITALOPRAM HYDROBROMIDE
     Indication: Anxiety
     Dosage: BUILT UP TO 40MG/DAY DECREASED TO 20 THEN 10
     Route: 065
     Dates: start: 20200202, end: 20231028

REACTIONS (3)
  - Antidepressant discontinuation syndrome [Recovered/Resolved]
  - Sexual dysfunction [Recovered/Resolved with Sequelae]
  - Female sexual dysfunction [Recovered/Resolved with Sequelae]

NARRATIVE: CASE EVENT DATE: 20200202
